FAERS Safety Report 17121873 (Version 5)
Quarter: 2020Q1

REPORT INFORMATION
  Report Type: Spontaneous
  Country: US (occurrence: US)
  Receive Date: 20191206
  Receipt Date: 20200224
  Transmission Date: 20200409
  Serious: Yes (Other)
  Sender: FDA-Public Use
  Company Number: US-PFIZER INC-2018496444

PATIENT
  Age: 58 Year
  Sex: Male
  Weight: 97.52 kg

DRUGS (27)
  1. ALLEGRA ALLERGY [Concomitant]
     Active Substance: FEXOFENADINE HYDROCHLORIDE
     Dosage: 180 MG, DAILY
     Route: 048
  2. LISINOPRIL. [Concomitant]
     Active Substance: LISINOPRIL
     Dosage: 5 MG, DAILY
     Route: 048
  3. RANITIDINE HCL [Concomitant]
     Active Substance: RANITIDINE HYDROCHLORIDE
     Dosage: 150 MG, DAILY
     Route: 048
  4. TAMSULOSIN HCL [Concomitant]
     Active Substance: TAMSULOSIN HYDROCHLORIDE
     Dosage: 0.4 MG, DAILY
     Route: 048
  5. COLACE [Concomitant]
     Active Substance: DOCUSATE SODIUM
     Dosage: 100 MG, AS NEEDED
     Route: 048
  6. ROSUVASTATIN CALCIUM. [Concomitant]
     Active Substance: ROSUVASTATIN CALCIUM
     Dosage: 40 MG, DAILY
     Route: 048
  7. GABAPENTIN. [Suspect]
     Active Substance: GABAPENTIN
     Indication: NEUROPATHY PERIPHERAL
     Dosage: 300 MG, UNK
  8. GABAPENTIN. [Suspect]
     Active Substance: GABAPENTIN
     Indication: PAIN IN EXTREMITY
     Dosage: 1500 MG, DAILY 300 MG 2 IN THE AM, 3 IN THE EVENING)
     Route: 048
  9. NORTRIPTYLINE [Concomitant]
     Active Substance: NORTRIPTYLINE
     Indication: NEUROPATHY PERIPHERAL
     Dosage: 75 MG, DAILY (AT BEDTIME)
     Route: 048
  10. PAMELOR [Concomitant]
     Active Substance: NORTRIPTYLINE HYDROCHLORIDE
     Dosage: 50 MG, DAILY (QHS AT BEDTIME)
     Route: 048
     Dates: start: 20170926
  11. PAMELOR [Concomitant]
     Active Substance: NORTRIPTYLINE HYDROCHLORIDE
     Dosage: 75 MG, DAILY(EVERY BED TIME QHS)
     Route: 048
     Dates: start: 20171201
  12. SPIRONOLACTONE. [Concomitant]
     Active Substance: SPIRONOLACTONE
     Dosage: 25 MG, 2X/DAY
     Route: 048
  13. GABAPENTIN. [Suspect]
     Active Substance: GABAPENTIN
     Dosage: 1800 MG, DAILY (2 CAPSULES OF 300MG, THREE TIMES DAILY)
     Route: 048
     Dates: start: 20171201
  14. BECONASE AQ [Concomitant]
     Active Substance: BECLOMETHASONE DIPROPIONATE MONOHYDRATE
     Dosage: 42 UG, AS NEEDED
  15. MIRALAX [Concomitant]
     Active Substance: POLYETHYLENE GLYCOL 3350
     Dosage: UNK UNK, AS NEEDED
     Route: 048
  16. AMLODIPINE BESYLATE 10 [Concomitant]
     Dosage: 10 MG, DAILY
     Route: 048
  17. APPLE CIDER VINEGAR [Concomitant]
     Active Substance: APPLE CIDER VINEGAR
     Dosage: 1500 MG, DAILY
     Route: 048
  18. DULCOLAX (BISACODYL) [Concomitant]
     Active Substance: BISACODYL
     Dosage: 5 MG, DAILY
     Route: 048
  19. GARLIQUE [Concomitant]
     Active Substance: GARLIC
     Dosage: 400 MG, DAILY
     Route: 048
  20. OMEPRAZOLE. [Concomitant]
     Active Substance: OMEPRAZOLE
     Dosage: 40 MG, DAILY
     Route: 048
  21. GABAPENTIN. [Suspect]
     Active Substance: GABAPENTIN
     Indication: POLYNEUROPATHY
     Dosage: 2100 MG, DAILY (300 MG 2 IN AM, 2 IN AFTERNOON, AND 3 AT NIGHT)
     Route: 048
  22. GABAPENTIN. [Suspect]
     Active Substance: GABAPENTIN
     Dosage: 600 MG, DAILY (300MG 1 IN AM AND A NIGHT)
  23. ADVIL [IBUPROFEN] [Concomitant]
     Active Substance: IBUPROFEN
     Dosage: 200 MG, AS NEEDED
     Route: 048
  24. ASPIRIN 81 [Concomitant]
     Active Substance: ASPIRIN
     Dosage: 81 MG, DAILY
     Route: 048
  25. COD LIVER OIL [Concomitant]
     Active Substance: COD LIVER OIL
     Dosage: 2 DF, DAILY (10000-400IU CAPSULE, 2 DAILY)
     Route: 048
  26. HYDROCHLOROTHIAZIDE. [Concomitant]
     Active Substance: HYDROCHLOROTHIAZIDE
     Dosage: 25 MG, DAILY
     Route: 048
  27. TERAZOSIN HCL [Concomitant]
     Active Substance: TERAZOSIN HYDROCHLORIDE
     Dosage: 2 MG, DAILY
     Route: 048

REACTIONS (21)
  - Weight increased [Unknown]
  - Neurogenic bladder [Unknown]
  - Presyncope [Not Recovered/Not Resolved]
  - Dizziness [Unknown]
  - Insomnia [Not Recovered/Not Resolved]
  - Nocturia [Unknown]
  - Abdominal hernia [Unknown]
  - Off label use [Not Recovered/Not Resolved]
  - Pollakiuria [Unknown]
  - Carpal tunnel syndrome [Unknown]
  - Body mass index abnormal [Unknown]
  - Blood pressure increased [Recovered/Resolved]
  - Nephropathy [Unknown]
  - Drug ineffective for unapproved indication [Not Recovered/Not Resolved]
  - Pain in extremity [Not Recovered/Not Resolved]
  - Peripheral coldness [Unknown]
  - Serum ferritin increased [Unknown]
  - Gait disturbance [Unknown]
  - Neuropathy peripheral [Not Recovered/Not Resolved]
  - Memory impairment [Unknown]
  - Back pain [Unknown]

NARRATIVE: CASE EVENT DATE: 20170928
